FAERS Safety Report 5724648-7 (Version None)
Quarter: 2008Q2

REPORT INFORMATION
  Report Type: 
  Country: None (occurrence: None)
  Receive Date: 20080430
  Receipt Date: 20080430
  Transmission Date: 20081010
  Serious: No
  Sender: FDA-Public Use
  Company Number: None

PATIENT
  Age: 78 Year
  Sex: Female

DRUGS (1)
  1. DIGITEK TABS B146; 0.25MG [Suspect]
     Indication: ATRIAL FIBRILLATION

REACTIONS (1)
  - HEART RATE DECREASED [None]
